FAERS Safety Report 4320213-7 (Version None)
Quarter: 2004Q1

REPORT INFORMATION
  Report Type: 
  Country: None (occurrence: None)
  Receive Date: 20040317
  Receipt Date: 20040304
  Transmission Date: 20041129
  Serious: Yes (Death, Hospitalization)
  Sender: FDA-Public Use
  Company Number: ZONI001345

PATIENT
  Age: 24 Year
  Sex: Male

DRUGS (9)
  1. EXCEGRAN (ZONISAMIDE) [Suspect]
     Indication: CONVULSION
     Dosage: 200 MG DAILY ORAL
     Route: 048
     Dates: start: 20031105, end: 20031205
  2. KAKKON-TOU (KAKKON-TOU) [Concomitant]
  3. LEVOFLOXACIN [Concomitant]
  4. ANTIBIOPHILUS (LACTOBACILLUS ACIDOPHILUS) [Concomitant]
  5. COENZYME N (DIGESTIVE ENZYME WITH BIONATTOKIN) [Concomitant]
  6. URSODESOXYCHOLIC ACID (URSODESOXYCHOLIC ACID) [Concomitant]
  7. HUSCODE (CHLORPHENAMINE MALEATE) [Concomitant]
  8. APRICOT KERNEL WATER (APRICOT KERNEL WATER) [Concomitant]
  9. NAPA (PARACETAMOL) [Concomitant]

REACTIONS (8)
  - COMA [None]
  - CONVULSION [None]
  - DISSEMINATED INTRAVASCULAR COAGULATION [None]
  - DRUG HYPERSENSITIVITY [None]
  - HEPATITIS FULMINANT [None]
  - HYPERAMMONAEMIA [None]
  - PLATELET COUNT INCREASED [None]
  - RUBELLA [None]
